FAERS Safety Report 20991724 (Version 1)
Quarter: 2022Q2

REPORT INFORMATION
  Report Type: Spontaneous
  Country: US (occurrence: US)
  Receive Date: 20220622
  Receipt Date: 20220622
  Transmission Date: 20220721
  Serious: Yes (Hospitalization)
  Sender: FDA-Public Use
  Company Number: US-TAKEDA-2022TUS040937

PATIENT
  Sex: Female
  Weight: 58 kg

DRUGS (1)
  1. LIVTENCITY [Suspect]
     Active Substance: MARIBAVIR
     Indication: Pneumonia cytomegaloviral
     Dosage: 800 MILLIGRAM, QD
     Route: 048
     Dates: start: 20220325

REACTIONS (1)
  - Hospitalisation [Unknown]
